FAERS Safety Report 5223942-6 (Version None)
Quarter: 2007Q1

REPORT INFORMATION
  Report Type: 
  Country: None (occurrence: None)
  Receive Date: 20070130
  Receipt Date: 20070119
  Transmission Date: 20070707
  Serious: Yes (Death)
  Sender: FDA-Public Use
  Company Number: CN-ROCHE-477513

PATIENT
  Age: 43 Year
  Sex: Male
  Weight: 75 kg

DRUGS (2)
  1. PEGASYS [Suspect]
     Indication: HEPATITIS B
     Dosage: ROUTE REPORTED AS HYPO.
     Route: 050
     Dates: start: 20060913, end: 20060913
  2. HEPATOCYTE GROWTH FACTOR [Concomitant]
     Indication: HEPATITIS B
     Dosage: ROUTE REPORTED AS INJECTION.
     Route: 050
     Dates: start: 20060908, end: 20061010

REACTIONS (2)
  - DEATH [None]
  - HEPATIC FAILURE [None]
